FAERS Safety Report 8623178-2 (Version None)
Quarter: 2012Q3

REPORT INFORMATION
  Report Type: 
  Country: None (occurrence: None)
  Receive Date: 20120827
  Receipt Date: 20120823
  Transmission Date: 20120928
  Serious: Yes (Other)
  Sender: FDA-Public Use
  Company Number: PHHY2012BR065146

PATIENT
  Sex: Male

DRUGS (2)
  1. RITALIN LA [Suspect]
     Indication: ATTENTION DEFICIT/HYPERACTIVITY DISORDER
     Dosage: HALF TABLET
     Route: 048
  2. RITALIN LA [Suspect]
     Dosage: 1 TABLET A DAY
     Route: 048

REACTIONS (5)
  - ENOPHTHALMOS [None]
  - NERVOUSNESS [None]
  - DEPRESSED MOOD [None]
  - CRYING [None]
  - INCORRECT DOSE ADMINISTERED [None]
